FAERS Safety Report 5120947-0 (Version None)
Quarter: 2006Q4

REPORT INFORMATION
  Report Type: 
  Country: None (occurrence: None)
  Receive Date: 20061003
  Receipt Date: 20061003
  Transmission Date: 20070319
  Serious: Yes (Life-Threatening, Hospitalization)
  Sender: FDA-Public Use
  Company Number: None

PATIENT
  Age: 53 Year
  Sex: Female

DRUGS (1)
  1. DROPERIDOL [Suspect]
     Indication: NAUSEA
     Dosage: IV BOLUS
     Route: 040
     Dates: start: 20060928, end: 20060928

REACTIONS (3)
  - ANXIETY [None]
  - ELECTROCARDIOGRAM QT PROLONGED [None]
  - SINUS BRADYCARDIA [None]
